FAERS Safety Report 5452259-X (Version None)
Quarter: 2007Q3

REPORT INFORMATION
  Report Type: 
  Country: None (occurrence: None)
  Receive Date: 20070912
  Receipt Date: 20070912
  Transmission Date: 20080115
  Serious: No
  Sender: FDA-Public Use
  Company Number: None

PATIENT
  Age: 41 Year
  Sex: Female
  Weight: 91.6266 kg

DRUGS (1)
  1. EFFEXOR [Suspect]
     Indication: DEPRESSION
     Dosage: 150 ML  1 A DAY  PO
     Route: 048
     Dates: start: 20060801, end: 20070814

REACTIONS (23)
  - ABNORMAL SENSATION IN EYE [None]
  - ABNORMAL SLEEP-RELATED EVENT [None]
  - ANGER [None]
  - ANIMAL BITE [None]
  - CRYING [None]
  - DRUG WITHDRAWAL SYNDROME [None]
  - EYELID DISORDER [None]
  - FEELING ABNORMAL [None]
  - FEELING OF BODY TEMPERATURE CHANGE [None]
  - HEADACHE [None]
  - HOMICIDAL IDEATION [None]
  - HYPERHIDROSIS [None]
  - IMPAIRED HEALING [None]
  - INAPPROPRIATE AFFECT [None]
  - INFLUENZA [None]
  - IRRITABILITY [None]
  - MEMORY IMPAIRMENT [None]
  - MUSCLE INJURY [None]
  - NERVE INJURY [None]
  - NIGHTMARE [None]
  - PAIN IN EXTREMITY [None]
  - SUICIDAL IDEATION [None]
  - WEIGHT INCREASED [None]
